FAERS Safety Report 12708222 (Version 1)
Quarter: 2016Q3

REPORT INFORMATION
  Report Type: Spontaneous
  Country: US (occurrence: US)
  Receive Date: 20160901
  Receipt Date: 20160901
  Transmission Date: 20161109
  Serious: Yes (Other)
  Sender: FDA-Public Use
  Company Number: US-BAYER-2016-164534

PATIENT
  Age: 64 Year
  Sex: Female

DRUGS (1)
  1. BETASERON [Suspect]
     Active Substance: INTERFERON BETA-1B
     Dosage: UNK FOR 10 YEARS
     Dates: end: 2016

REACTIONS (7)
  - Hypoaesthesia [None]
  - Paraesthesia [None]
  - Condition aggravated [None]
  - Musculoskeletal stiffness [None]
  - Malaise [None]
  - Visual impairment [None]
  - Gait disturbance [None]

NARRATIVE: CASE EVENT DATE: 2016
